FAERS Safety Report 9551778 (Version 2)
Quarter: 2013Q3

REPORT INFORMATION
  Report Type: Report from Study
  Country: CA (occurrence: CA)
  Receive Date: 20130925
  Receipt Date: 20130927
  Transmission Date: 20140515
  Serious: Yes (Hospitalization, Other)
  Sender: FDA-Public Use
  Company Number: CA-JNJFOC-20130912401

PATIENT
  Age: 67 Year
  Sex: Female
  Weight: 46 kg

DRUGS (2)
  1. REMICADE [Suspect]
     Indication: CROHN^S DISEASE
     Route: 042
     Dates: start: 2002
  2. REMICADE [Suspect]
     Indication: CROHN^S DISEASE
     Route: 042
     Dates: start: 20030320, end: 20130515

REACTIONS (7)
  - Salpingo-oophorectomy bilateral [Recovering/Resolving]
  - Hysterectomy [Recovering/Resolving]
  - Pelvic pouch procedure [Recovering/Resolving]
  - Stent placement [Recovering/Resolving]
  - Small intestinal resection [Recovering/Resolving]
  - Pulmonary thrombosis [Not Recovered/Not Resolved]
  - Dehydration [Not Recovered/Not Resolved]
